FAERS Safety Report 14251485 (Version 22)
Quarter: 2020Q1

REPORT INFORMATION
  Report Type: Spontaneous
  Country: US (occurrence: US)
  Receive Date: 20171205
  Receipt Date: 20200228
  Transmission Date: 20200409
  Serious: Yes (Hospitalization)
  Sender: FDA-Public Use
  Company Number: US-ACTELION-A-NJ2017-163595

PATIENT
  Age: 49 Year
  Sex: Female
  Weight: 120.64 kg

DRUGS (28)
  1. OPSUMIT [Suspect]
     Active Substance: MACITENTAN
     Indication: PULMONARY ARTERIAL HYPERTENSION
     Dosage: 10 MG, QD
     Route: 048
     Dates: start: 20170809
  2. OPSUMIT [Suspect]
     Active Substance: MACITENTAN
     Dosage: 10 MG, QD
     Route: 048
  3. POTASSIUM [Concomitant]
     Active Substance: POTASSIUM
  4. DULERA [Concomitant]
     Active Substance: FORMOTEROL FUMARATE DIHYDRATE\MOMETASONE FUROATE
  5. BUMEX [Concomitant]
     Active Substance: BUMETANIDE
  6. ALLOPURINOL. [Concomitant]
     Active Substance: ALLOPURINOL
  7. REMODULIN [Suspect]
     Active Substance: TREPROSTINIL
     Indication: PRODUCT USED FOR UNKNOWN INDICATION
     Dosage: 61 UNK
     Route: 042
     Dates: start: 20190606
  8. SILDENAFIL. [Suspect]
     Active Substance: SILDENAFIL
     Indication: PULMONARY ARTERIAL HYPERTENSION
     Dosage: 20 MG, TID
     Route: 065
     Dates: start: 20171116
  9. POTASSIUM CHLORIDE. [Concomitant]
     Active Substance: POTASSIUM CHLORIDE
     Dosage: UNK
     Dates: start: 20190612
  10. REVATIO [Concomitant]
     Active Substance: SILDENAFIL CITRATE
     Dosage: UNK
     Dates: start: 20190522
  11. ORENITRAM [Concomitant]
     Active Substance: TREPROSTINIL
  12. PROTONIX [Concomitant]
     Active Substance: PANTOPRAZOLE SODIUM
     Dosage: UNK
     Dates: start: 20190522
  13. BUDESONIDE. [Concomitant]
     Active Substance: BUDESONIDE
     Dosage: UNK
     Dates: start: 20190612
  14. VITAMIN B12 [Concomitant]
     Active Substance: CYANOCOBALAMIN
  15. PANTOPRAZOLE [Concomitant]
     Active Substance: PANTOPRAZOLE
  16. SPIRONOLACTONE. [Concomitant]
     Active Substance: SPIRONOLACTONE
  17. LOSARTAN. [Concomitant]
     Active Substance: LOSARTAN
  18. NIFEDIPINE. [Concomitant]
     Active Substance: NIFEDIPINE
     Dosage: 90 MG, UNK
  19. VITAMIN D [Concomitant]
     Active Substance: VITAMIN D NOS
  20. BETHANECHOL [Concomitant]
     Active Substance: BETHANECHOL
  21. CYANOCOBALAMIN. [Concomitant]
     Active Substance: CYANOCOBALAMIN
     Dosage: UNK
     Dates: start: 20190522
  22. ARFORMOTEROL [Concomitant]
     Active Substance: ARFORMOTEROL
     Dosage: UNK
     Dates: start: 20190612
  23. OXYGEN. [Concomitant]
     Active Substance: OXYGEN
     Dosage: 4 L
     Dates: start: 20190612
  24. LASIX [Concomitant]
     Active Substance: FUROSEMIDE
  25. REMODULIN [Suspect]
     Active Substance: TREPROSTINIL
     Dosage: 77 UNK
     Route: 042
  26. FORMOTEROL [Concomitant]
     Active Substance: FORMOTEROL
     Dosage: UNK
     Dates: start: 20190522
  27. APRESOLIN [Concomitant]
     Active Substance: HYDRALAZINE HYDROCHLORIDE
  28. LEVOTHYROXINE. [Concomitant]
     Active Substance: LEVOTHYROXINE

REACTIONS (44)
  - Condition aggravated [Unknown]
  - Haemoglobin decreased [Unknown]
  - Dry skin [Unknown]
  - Abdominal discomfort [Not Recovered/Not Resolved]
  - Device leakage [Unknown]
  - Lethargy [Not Recovered/Not Resolved]
  - Infusion site rash [Unknown]
  - Acute kidney injury [Recovered/Resolved]
  - Therapy non-responder [Unknown]
  - Infusion site pain [Unknown]
  - Generalised oedema [Recovered/Resolved]
  - Oedema [Recovered/Resolved]
  - Hypoxia [Unknown]
  - Blood creatinine increased [Recovered/Resolved]
  - Respiratory failure [Recovered/Resolved]
  - Pulmonary arterial hypertension [Unknown]
  - Pruritus [Unknown]
  - Hypersomnia [Not Recovered/Not Resolved]
  - Orthopnoea [Unknown]
  - Jugular vein distension [Unknown]
  - Scab [Unknown]
  - Product dose omission [Unknown]
  - Fatigue [Recovered/Resolved]
  - Dizziness [Recovered/Resolved]
  - Dyspnoea [Unknown]
  - Oedema peripheral [Unknown]
  - Chronic kidney disease [Not Recovered/Not Resolved]
  - Fluid retention [Unknown]
  - Gastrointestinal disorder [Unknown]
  - Infusion site pruritus [Unknown]
  - Emergency care [Unknown]
  - Fall [Recovered/Resolved]
  - Malaise [Unknown]
  - Fluid overload [Recovered/Resolved]
  - Pleural effusion [Unknown]
  - Constipation [Not Recovered/Not Resolved]
  - Decreased interest [Not Recovered/Not Resolved]
  - Blood pressure decreased [Not Recovered/Not Resolved]
  - Device dislocation [Recovered/Resolved]
  - Hospitalisation [Unknown]
  - Weight increased [Recovering/Resolving]
  - Oxygen saturation decreased [Unknown]
  - Diarrhoea [Not Recovered/Not Resolved]
  - Memory impairment [Unknown]

NARRATIVE: CASE EVENT DATE: 201709
